FAERS Safety Report 11289024 (Version 3)
Quarter: 2015Q3

REPORT INFORMATION
  Report Type: Spontaneous
  Country: JP (occurrence: JP)
  Receive Date: 20150721
  Receipt Date: 20150821
  Transmission Date: 20151125
  Serious: Yes (Other)
  Sender: FDA-Public Use
  Company Number: JP-ASTRAZENECA-2015SE68282

PATIENT
  Age: 9691 Day
  Sex: Female
  Weight: 58 kg

DRUGS (12)
  1. CEFDITOREN PIVOXIL. [Suspect]
     Active Substance: CEFDITOREN PIVOXIL
     Indication: BRONCHITIS
     Route: 048
     Dates: start: 20150608, end: 20150612
  2. PREDONINE [Concomitant]
     Active Substance: PREDNISOLONE\PREDNISOLONE ACETATE\PREDNISOLONE SODIUM SUCCINATE
     Route: 048
     Dates: start: 20150614, end: 20150615
  3. MEDICON [Concomitant]
     Active Substance: DEXTROMETHORPHAN HYDROBROMIDE
     Indication: NASOPHARYNGITIS
     Dosage: DOSE UNKNOWN
     Route: 065
     Dates: start: 20150531
  4. SHOSEIRYUTO [Concomitant]
     Active Substance: EPHEDRA SINICA STEM\HERBALS
     Indication: NASOPHARYNGITIS
     Dosage: DOSE UNKNOWN
     Route: 065
     Dates: start: 20150531
  5. SYMBICORT [Suspect]
     Active Substance: BUDESONIDE\FORMOTEROL FUMARATE DIHYDRATE
     Indication: ASTHMA
     Dosage: 2 PUFFS TWICE DAILY
     Route: 055
     Dates: start: 20150602, end: 20150604
  6. SYMBICORT [Suspect]
     Active Substance: BUDESONIDE\FORMOTEROL FUMARATE DIHYDRATE
     Indication: ASTHMA
     Dosage: 4 PUFFS TWICE DAILY
     Route: 055
     Dates: start: 20150605, end: 20150615
  7. VENETLIN [Concomitant]
     Active Substance: ALBUTEROL SULFATE
     Dosage: DOSE UNKNOWN
     Route: 055
  8. PREDONINE [Concomitant]
     Active Substance: PREDNISOLONE\PREDNISOLONE ACETATE\PREDNISOLONE SODIUM SUCCINATE
     Route: 048
     Dates: start: 20150608, end: 20150613
  9. VENETLIN [Concomitant]
     Active Substance: ALBUTEROL SULFATE
     Route: 055
     Dates: start: 20150602
  10. POLARAMINE [Suspect]
     Active Substance: DEXCHLORPHENIRAMINE MALEATE
     Indication: RHINITIS ALLERGIC
     Route: 048
     Dates: start: 20150608, end: 20150615
  11. CEFTRIAXONE NA [Suspect]
     Active Substance: CEFTRIAXONE
     Indication: BRONCHITIS
     Route: 041
     Dates: start: 20150613, end: 20150615
  12. INTAL [Concomitant]
     Active Substance: CROMOLYN SODIUM
     Dosage: DOSE UNKNOWN
     Route: 065
     Dates: start: 20150602

REACTIONS (3)
  - Pharyngitis [Recovered/Resolved]
  - Erythema multiforme [Recovered/Resolved]
  - Stevens-Johnson syndrome [Recovered/Resolved]

NARRATIVE: CASE EVENT DATE: 20150613
